FAERS Safety Report 7396690-4 (Version None)
Quarter: 2011Q2

REPORT INFORMATION
  Report Type: 
  Country: None (occurrence: None)
  Receive Date: 20110406
  Receipt Date: 20110331
  Transmission Date: 20111010
  Serious: Yes (Other)
  Sender: FDA-Public Use
  Company Number: AU-ROCHE-763483

PATIENT
  Sex: Female
  Weight: 90 kg

DRUGS (2)
  1. ACTEMRA [Suspect]
     Indication: RHEUMATOID ARTHRITIS
     Route: 042
     Dates: start: 20100601
  2. ACTEMRA [Suspect]
     Dosage: FORM: INFUSION
     Route: 042
     Dates: start: 20110301

REACTIONS (1)
  - SYNCOPE [None]
